FAERS Safety Report 6199747-9 (Version None)
Quarter: 2009Q2

REPORT INFORMATION
  Report Type: 
  Country: None (occurrence: None)
  Receive Date: 20090522
  Receipt Date: 20090513
  Transmission Date: 20091009
  Serious: Yes (Other)
  Sender: FDA-Public Use
  Company Number: BR-ABBOTT-09P-020-0573477-00

PATIENT
  Sex: Female
  Weight: 51.5 kg

DRUGS (5)
  1. SYNTHROID [Suspect]
     Indication: HYPOTHYROIDISM
     Route: 048
     Dates: start: 20040101, end: 20090501
  2. SYNTHROID [Suspect]
     Dosage: 1 TABLET
     Route: 048
     Dates: start: 20090501, end: 20090513
  3. ALENDRONATE SODIUM [Concomitant]
     Indication: OSTEOPOROSIS
     Route: 048
  4. ATENOLOL [Concomitant]
     Indication: BLOOD PRESSURE
     Dosage: 1 TABLET
     Route: 048
  5. UNKNOWN MAGISTRAL FORMULA [Concomitant]
     Indication: DRUG USE FOR UNKNOWN INDICATION

REACTIONS (15)
  - BLOOD PRESSURE ABNORMAL [None]
  - DEPRESSION [None]
  - DRY EYE [None]
  - DRY MOUTH [None]
  - EMOTIONAL DISORDER [None]
  - FALL [None]
  - FINGER DEFORMITY [None]
  - INCORRECT DOSE ADMINISTERED [None]
  - INSOMNIA [None]
  - NEPHROLITHIASIS [None]
  - PAIN [None]
  - RIB FRACTURE [None]
  - SPINAL FRACTURE [None]
  - VISION BLURRED [None]
  - WEIGHT DECREASED [None]
